FAERS Safety Report 4986215-2 (Version None)
Quarter: 2006Q2

REPORT INFORMATION
  Report Type: 
  Country: None (occurrence: None)
  Receive Date: 20060424
  Receipt Date: 20060407
  Transmission Date: 20061013
  Serious: Yes (Hospitalization)
  Sender: FDA-Public Use
  Company Number: TRP_0749_2006

PATIENT
  Age: 36 Year
  Sex: Female

DRUGS (8)
  1. RIBASPHERE/RIBAVIRIN/THREE RIVERS PHARMA/200 MG [Suspect]
     Indication: HEPATITIS C
     Dates: start: 20051222
  2. PEG-INTRON [Suspect]
     Indication: HEPATITIS C
     Dosage: DF UNK SC
     Route: 058
     Dates: start: 20051222
  3. CYMABLTA [Concomitant]
  4. GLIMEPIRIDE [Concomitant]
  5. HYDROXYZINE HYDROCHLORIDE [Concomitant]
  6. METFORMIN HYDROCHLORIDE [Concomitant]
  7. NEURONTIN [Concomitant]
  8. SEROQUEL [Concomitant]

REACTIONS (9)
  - BACK PAIN [None]
  - CONDITION AGGRAVATED [None]
  - DEPRESSION [None]
  - HALLUCINATION, AUDITORY [None]
  - HOMICIDAL IDEATION [None]
  - INJECTION SITE REACTION [None]
  - LABORATORY TEST ABNORMAL [None]
  - SUICIDAL IDEATION [None]
  - WEIGHT DECREASED [None]
